FAERS Safety Report 15240724 (Version 1)
Quarter: 2018Q3

REPORT INFORMATION
  Report Type: Spontaneous
  Country: GB (occurrence: GB)
  Receive Date: 20180804
  Receipt Date: 20180804
  Transmission Date: 20181010
  Serious: Yes (Hospitalization, Other)
  Sender: FDA-Public Use
  Company Number: GB-SA-2018SA202492

PATIENT
  Age: 59 Year
  Sex: Female

DRUGS (3)
  1. METHOTREXATE. [Concomitant]
     Active Substance: METHOTREXATE
     Indication: PSORIATIC ARTHROPATHY
  2. PREDNISOLONE. [Concomitant]
     Active Substance: PREDNISOLONE
     Indication: PSORIATIC ARTHROPATHY
  3. LEFLUNOMIDE. [Suspect]
     Active Substance: LEFLUNOMIDE
     Indication: PSORIATIC ARTHROPATHY
     Dosage: 2 MONTHS EARLIER WAS STARTED ON LEFLUNOMIDE

REACTIONS (4)
  - Pulmonary embolism [Unknown]
  - Pulmonary infarction [Unknown]
  - Paradoxical embolism [Recovering/Resolving]
  - Deep vein thrombosis [Unknown]
